FAERS Safety Report 25936789 (Version 3)
Quarter: 2025Q4

REPORT INFORMATION
  Report Type: Spontaneous
  Country: US (occurrence: US)
  Receive Date: 20251017
  Receipt Date: 20251030
  Transmission Date: 20260117
  Serious: Yes (Hospitalization, Other)
  Sender: DERMARITE INDUSTRIES
  Company Number: US-DERMARITE INDUSTRIES, LLC.-2025-DER-US000074

PATIENT

DRUGS (6)
  1. ALOE [Suspect]
     Active Substance: ALOE
     Indication: Therapeutic skin care topical
     Dosage: ONCE DAILY
     Route: 061
     Dates: end: 202507
  2. ALOE [Suspect]
     Active Substance: ALOE
     Dosage: UNK UNK, PRN
     Route: 061
     Dates: end: 2025
  3. ALOE [Suspect]
     Active Substance: ALOE
     Indication: Product used for unknown indication
     Dosage: MULTIPLE TIMES DAILY
     Route: 061
     Dates: end: 202507
  4. ALOE [Suspect]
     Active Substance: ALOE
     Dosage: MULTIPLE TIMES DAILY
     Route: 061
     Dates: end: 202507
  5. COSMETICS [Suspect]
     Active Substance: COSMETICS
     Indication: Product used for unknown indication
     Dosage: UNKNOWN
     Route: 061
     Dates: end: 202507
  6. INSULIN NOS [Concomitant]
     Active Substance: INSULIN NOS
     Indication: Diabetes mellitus

REACTIONS (3)
  - Burkholderia cepacia complex infection [Recovered/Resolved]
  - Neurectomy [Recovered/Resolved]
  - Postoperative wound infection [Recovered/Resolved]

NARRATIVE: CASE EVENT DATE: 20240101
